FAERS Safety Report 15035247 (Version 2)
Quarter: 2018Q3

REPORT INFORMATION
  Report Type: Spontaneous
  Country: US (occurrence: US)
  Receive Date: 20180620
  Receipt Date: 20180924
  Transmission Date: 20181010
  Serious: No
  Sender: FDA-Public Use
  Company Number: US-AUROBINDO-AUR-APL-2018-027251

PATIENT
  Sex: Male

DRUGS (1)
  1. ATOMOXETINE CAPSULES USP 40 MG [Suspect]
     Active Substance: ATOMOXETINE
     Indication: ATTENTION DEFICIT/HYPERACTIVITY DISORDER
     Dosage: 40 MILLIGRAM
     Route: 065

REACTIONS (5)
  - Abnormal behaviour [Unknown]
  - Product substitution issue [Unknown]
  - Anger [Unknown]
  - Antisocial behaviour [Unknown]
  - Irritability [Unknown]
